FAERS Safety Report 10696359 (Version 1)
Quarter: 2015Q1

REPORT INFORMATION
  Report Type: Spontaneous
  Country: US (occurrence: US)
  Receive Date: 20150107
  Receipt Date: 20150107
  Transmission Date: 20150721
  Serious: No
  Sender: FDA-Public Use
  Company Number: US-TEVA-530830USA

PATIENT
  Age: 53 Year
  Sex: Female

DRUGS (3)
  1. AZILECT [Suspect]
     Active Substance: RASAGILINE MESYLATE
  2. SINEMET [Concomitant]
     Active Substance: CARBIDOPA\LEVODOPA
  3. MIRAPEX [Concomitant]
     Active Substance: PRAMIPEXOLE DIHYDROCHLORIDE

REACTIONS (12)
  - Musculoskeletal stiffness [Unknown]
  - Compulsive shopping [Unknown]
  - Drug ineffective [Unknown]
  - Weight decreased [Unknown]
  - Drooling [Unknown]
  - Dyskinesia [Unknown]
  - Tremor [Unknown]
  - Hypoaesthesia [Unknown]
  - Dry mouth [Unknown]
  - Rhinorrhoea [Unknown]
  - Fall [Unknown]
  - Limb discomfort [Unknown]
